FAERS Safety Report 20817877 (Version 1)
Quarter: 2022Q2

REPORT INFORMATION
  Report Type: Report from Study
  Country: US (occurrence: None)
  Receive Date: 20220512
  Receipt Date: 20220512
  Transmission Date: 20220721
  Serious: Yes (Hospitalization)
  Sender: FDA-Public Use
  Company Number: US-ROCHE-3093762

PATIENT
  Age: 74 Year
  Sex: Female

DRUGS (1)
  1. BEVACIZUMAB [Suspect]
     Active Substance: BEVACIZUMAB
     Indication: Fallopian tube cancer
     Route: 042
     Dates: start: 20110611, end: 20110908

REACTIONS (4)
  - Muscular weakness [Unknown]
  - Hypertension [Unknown]
  - Mental disorder [Unknown]
  - Syncope [Unknown]

NARRATIVE: CASE EVENT DATE: 20110915
